FAERS Safety Report 11483155 (Version 1)
Quarter: 2015Q3

REPORT INFORMATION
  Report Type: Spontaneous
  Country: US (occurrence: US)
  Receive Date: 20150909
  Receipt Date: 20150909
  Transmission Date: 20151125
  Serious: Yes (Other)
  Sender: FDA-Public Use
  Company Number: US-GLAXOSMITHKLINE-US2015GSK104485

PATIENT
  Age: 42 Year
  Sex: Male
  Weight: 108.9 kg

DRUGS (13)
  1. DILAUDID [Concomitant]
     Active Substance: HYDROMORPHONE HYDROCHLORIDE
  2. METOPROLOL [Concomitant]
     Active Substance: METOPROLOL
  3. GABAPENTIN. [Concomitant]
     Active Substance: GABAPENTIN
  4. VOTRIENT [Suspect]
     Active Substance: PAZOPANIB HYDROCHLORIDE
     Indication: RENAL CANCER
     Dosage: 800 MG, QD
     Route: 048
     Dates: start: 20150417
  5. DIAZEPAM. [Concomitant]
     Active Substance: DIAZEPAM
  6. ALPRAZOLAM. [Concomitant]
     Active Substance: ALPRAZOLAM
  7. HYDROMORPHONE [Concomitant]
     Active Substance: HYDROMORPHONE
  8. CYCLOBENZAPRINE [Concomitant]
     Active Substance: CYCLOBENZAPRINE
  9. GLIMEPIRIDE. [Concomitant]
     Active Substance: GLIMEPIRIDE
  10. FERROUS SULFATE [Concomitant]
     Active Substance: FERROUS SULFATE\FERROUS SULFATE, DRIED
  11. AMLODIPINE [Concomitant]
     Active Substance: AMLODIPINE BESYLATE
  12. TRADJENTA [Concomitant]
     Active Substance: LINAGLIPTIN
  13. CITALOPRAM [Concomitant]
     Active Substance: CITALOPRAM HYDROBROMIDE

REACTIONS (7)
  - Arthralgia [Unknown]
  - Bone cancer [Unknown]
  - Drug dose omission [Unknown]
  - Disturbance in attention [Unknown]
  - Musculoskeletal pain [Unknown]
  - Rib fracture [Unknown]
  - Pain [Unknown]

NARRATIVE: CASE EVENT DATE: 201506
